FAERS Safety Report 8766001 (Version 2)
Quarter: 2013Q4

REPORT INFORMATION
  Report Type: Report from Study
  Country: US (occurrence: US)
  Receive Date: 20120904
  Receipt Date: 20131101
  Transmission Date: 20140711
  Serious: No
  Sender: FDA-Public Use
  Company Number: US-009507513-1208USA010759

PATIENT
  Sex: Female

DRUGS (8)
  1. PEGINTRON [Suspect]
     Dosage: 0.5 ML, UNK
     Route: 058
  2. IBUPROFEN [Concomitant]
  3. HYDROCORT [Concomitant]
  4. CALCIUM (UNSPECIFIED) [Concomitant]
  5. LUXIQ [Concomitant]
  6. ASCORBIC ACID [Concomitant]
  7. MILK THISTLE [Concomitant]
  8. EPOGEN [Concomitant]

REACTIONS (1)
  - Red blood cell count decreased [Unknown]
